FAERS Safety Report 4531410-X (Version None)
Quarter: 2004Q4

REPORT INFORMATION
  Report Type: 
  Country: None (occurrence: None)
  Receive Date: 20041216
  Receipt Date: 20041201
  Transmission Date: 20050328
  Serious: Yes (Hospitalization)
  Sender: FDA-Public Use
  Company Number: 210000

PATIENT
  Age: 35 Year
  Sex: 0

DRUGS (2)
  1. AVASTIN [Suspect]
     Indication: RENAL CELL CARCINOMA STAGE UNSPECIFIED
     Dosage: 10 MG/KG, Q2W, INTRAVENOUS
     Route: 042
     Dates: start: 20040810, end: 20041005
  2. INTERFERON ALFA-2B (INTERFERON ALFA-2B) [Suspect]
     Indication: RENAL CELL CARCINOMA STAGE UNSPECIFIED
     Dosage: 9 MIU, 1 /WEEK, SUBCUTANEOUS
     Route: 058
     Dates: start: 20040810, end: 20041005

REACTIONS (6)
  - ARTHRALGIA [None]
  - LUNG INFILTRATION [None]
  - PLEURAL EFFUSION [None]
  - PNEUMONIA [None]
  - PULMONARY EMBOLISM [None]
  - RESPIRATORY FAILURE [None]
